FAERS Safety Report 17351154 (Version 1)
Quarter: 2020Q1

REPORT INFORMATION
  Report Type: Spontaneous
  Country: US (occurrence: US)
  Receive Date: 20200130
  Receipt Date: 20200130
  Transmission Date: 20200409
  Serious: Yes (Hospitalization)
  Sender: FDA-Public Use
  Company Number: US-QUAGEN PHARMA LLC-2020QUALIT00015

PATIENT
  Age: 1 Hour
  Sex: Female
  Weight: 2.81 kg

DRUGS (1)
  1. PROMETHAZINE HYDROCHLORIDE TABLETS, 25 MG [Suspect]
     Active Substance: PROMETHAZINE HYDROCHLORIDE

REACTIONS (6)
  - Hypopnoea [Recovered/Resolved]
  - Extrasystoles [Recovered/Resolved]
  - Accidental overdose [Recovered/Resolved]
  - Product use issue [Recovered/Resolved]
  - Somnolence [Recovered/Resolved]
  - Wrong patient received product [Recovered/Resolved]
